FAERS Safety Report 12246283 (Version 2)
Quarter: 2016Q3

REPORT INFORMATION
  Report Type: Spontaneous
  Country: US (occurrence: US)
  Receive Date: 20160407
  Receipt Date: 20160801
  Transmission Date: 20161109
  Serious: Yes (Death, Hospitalization)
  Sender: FDA-Public Use
  Company Number: US-JNJFOC-20160402669

PATIENT
  Age: 71 Year
  Sex: Female

DRUGS (1)
  1. XARELTO [Suspect]
     Active Substance: RIVAROXABAN
     Indication: THROMBOSIS PROPHYLAXIS
     Route: 048
     Dates: start: 20140727, end: 20140731

REACTIONS (3)
  - Gastrointestinal haemorrhage [Fatal]
  - Pulmonary embolism [Fatal]
  - Pneumonia [Fatal]

NARRATIVE: CASE EVENT DATE: 201407
